FAERS Safety Report 5501968-2 (Version None)
Quarter: 2007Q4

REPORT INFORMATION
  Report Type: 
  Country: None (occurrence: None)
  Receive Date: 20071030
  Receipt Date: 20071023
  Transmission Date: 20080405
  Serious: Yes (Hospitalization)
  Sender: FDA-Public Use
  Company Number: US-WYE-H00811307

PATIENT
  Age: 53 Year
  Sex: Female

DRUGS (2)
  1. TIGECYCLINE [Suspect]
     Indication: ACINETOBACTER INFECTION
     Dosage: 100 MG LOADING DOSE, FOLLOWED BY 50 MG EVERY 12 HOURS
     Route: 042
  2. TIGECYCLINE [Suspect]
     Indication: STENOTROPHOMONAS INFECTION

REACTIONS (1)
  - PATHOGEN RESISTANCE [None]
